FAERS Safety Report 6299250-1 (Version None)
Quarter: 2009Q3

REPORT INFORMATION
  Report Type: 
  Country: None (occurrence: None)
  Receive Date: 20090803
  Receipt Date: 20090715
  Transmission Date: 20100115
  Serious: Yes (Hospitalization)
  Sender: FDA-Public Use
  Company Number: 2008AL004073

PATIENT
  Age: 66 Year
  Sex: Female

DRUGS (25)
  1. DIGOXIN [Suspect]
     Dosage: 0.25MG, DAILY, PO
     Route: 048
     Dates: end: 20080501
  2. CELEXA [Concomitant]
  3. COMBIVENT [Concomitant]
  4. GLIPIZIDE [Concomitant]
  5. NEXIUM [Concomitant]
  6. EFFEXOR [Concomitant]
  7. FUROSEMIDE [Concomitant]
  8. GLUCOPHAGE [Concomitant]
  9. NOVOLIN R [Concomitant]
  10. NITROGLYCERIN [Concomitant]
  11. TOPROL-XL [Concomitant]
  12. PLAVIX [Concomitant]
  13. ASPIRIN [Concomitant]
  14. CARDIZEM [Concomitant]
  15. ZOCOR [Concomitant]
  16. VITAMIN E [Concomitant]
  17. LORAZEPAM [Concomitant]
  18. DILAUDID [Concomitant]
  19. CLOPIDOGREL [Concomitant]
  20. TOPROL-XL [Concomitant]
  21. DILTIAZEM [Concomitant]
  22. LIPITOR [Concomitant]
  23. EFFEXOR [Concomitant]
  24. ACTOS [Concomitant]
  25. METFORMIN [Concomitant]

REACTIONS (20)
  - ANAL SPHINCTER ATONY [None]
  - ANXIETY [None]
  - ARTHRALGIA [None]
  - BACK PAIN [None]
  - CHEST PAIN [None]
  - COLECTOMY [None]
  - CONFUSIONAL STATE [None]
  - DIARRHOEA [None]
  - DIZZINESS [None]
  - DYSPNOEA [None]
  - ECONOMIC PROBLEM [None]
  - FALL [None]
  - GASTROINTESTINAL HAEMORRHAGE [None]
  - HAEMORRHOIDS [None]
  - HALLUCINATION [None]
  - INJURY [None]
  - NAUSEA [None]
  - PAIN [None]
  - RECTAL HAEMORRHAGE [None]
  - UNEVALUABLE EVENT [None]
